FAERS Safety Report 5505991-3 (Version None)
Quarter: 2007Q4

REPORT INFORMATION
  Report Type: 
  Country: None (occurrence: None)
  Receive Date: 20071101
  Receipt Date: 20071101
  Transmission Date: 20080405
  Serious: No
  Sender: FDA-Public Use
  Company Number: None

PATIENT
  Sex: Female
  Weight: 54 kg

DRUGS (7)
  1. LORAZEPAM [Suspect]
     Indication: AGITATION
     Dosage: 1MG X1 IV
     Route: 042
     Dates: start: 20070921
  2. SEROQUEL [Concomitant]
  3. AMANTADINE HCL [Concomitant]
  4. SINEMET [Concomitant]
  5. CELEXA [Concomitant]
  6. ARICEPT [Concomitant]
  7. THYROID TAB [Concomitant]

REACTIONS (3)
  - ABNORMAL BEHAVIOUR [None]
  - AGITATION [None]
  - TREMOR [None]
